FAERS Safety Report 6494373-6 (Version None)
Quarter: 2009Q4

REPORT INFORMATION
  Report Type: 
  Country: None (occurrence: None)
  Receive Date: 20091214
  Receipt Date: 20090212
  Transmission Date: 20100525
  Serious: No
  Sender: FDA-Public Use
  Company Number: US-BRISTOL-MYERS SQUIBB COMPANY-14503783

PATIENT
  Age: 45 Year
  Sex: Male
  Weight: 166 kg

DRUGS (7)
  1. ABILIFY [Suspect]
     Indication: AFFECTIVE DISORDER
     Dosage: STARTED 2 YRS AGO.
  2. ABILIFY [Suspect]
     Indication: PARANOIA
     Dosage: STARTED 2 YRS AGO.
  3. CYMBALTA [Concomitant]
  4. LEVOTHYROXINE SODIUM [Concomitant]
  5. PROTONIX [Concomitant]
  6. JANUVIA [Concomitant]
  7. RAMIPRIL [Concomitant]

REACTIONS (2)
  - DYSKINESIA [None]
  - MYALGIA [None]
